FAERS Safety Report 21280015 (Version 2)
Quarter: 2022Q3

REPORT INFORMATION
  Report Type: Other
  Country: CA (occurrence: None)
  Receive Date: 20220901
  Receipt Date: 20220912
  Transmission Date: 20221027
  Serious: No
  Sender: FDA-Public Use
  Company Number: CA-ROCHE-3169616

PATIENT
  Sex: Male

DRUGS (1)
  1. ERIVEDGE [Suspect]
     Active Substance: VISMODEGIB
     Indication: Basal cell carcinoma
     Dosage: DRUG DOSE FIRST ADMINISTERED IS 150 MG MILLIGRAM(S)
     Route: 048
     Dates: start: 20220801, end: 2022

REACTIONS (2)
  - Drug ineffective [Unknown]
  - No adverse event [Unknown]
